FAERS Safety Report 6168857-4 (Version None)
Quarter: 2009Q2

REPORT INFORMATION
  Report Type: 
  Country: None (occurrence: None)
  Receive Date: 20090424
  Receipt Date: 20090424
  Transmission Date: 20091009
  Serious: Yes (Life-Threatening, Hospitalization)
  Sender: FDA-Public Use
  Company Number: None

PATIENT
  Age: 23 Year
  Sex: Female
  Weight: 65.7716 kg

DRUGS (2)
  1. TRAMADOL HYDROCHLORIDE [Suspect]
     Indication: ARTHRALGIA
     Dosage: 50 MG  2 TIMES A DAY
     Dates: start: 20090417, end: 20090419
  2. TRAMADOL HYDROCHLORIDE [Suspect]
     Indication: AUTOIMMUNE DISORDER
     Dosage: 50 MG  2 TIMES A DAY
     Dates: start: 20090417, end: 20090419

REACTIONS (1)
  - GRAND MAL CONVULSION [None]
